FAERS Safety Report 15963645 (Version 1)
Quarter: 2019Q1

REPORT INFORMATION
  Report Type: Spontaneous
  Country: US (occurrence: US)
  Receive Date: 20190214
  Receipt Date: 20190214
  Transmission Date: 20190417
  Serious: No
  Sender: FDA-Public Use
  Company Number: US-COLLEGIUM PHARMACEUTICAL, INC.-2019CGM00015

PATIENT
  Age: 51 Year
  Sex: Female
  Weight: 78.01 kg

DRUGS (9)
  1. FLEXERIL [Concomitant]
     Active Substance: CYCLOBENZAPRINE HYDROCHLORIDE
     Dosage: 10 MG, 3X/DAY
  2. ONDANSETRON [Concomitant]
     Active Substance: ONDANSETRON
     Dosage: 8 MG, AS NEEDED
  3. VALIUM [Concomitant]
     Active Substance: DIAZEPAM
     Dosage: 5 MG, 1X/DAY AT BEDTIME
  4. VITAMIN B12 [Concomitant]
     Active Substance: CYANOCOBALAMIN
  5. XTAMPZA ER [Suspect]
     Active Substance: OXYCODONE
     Indication: PAIN
     Dosage: 27 MG, 2X/DAY (EVERY 12 HOURS)
     Route: 048
     Dates: start: 201901
  6. MULTIVITAMIN [Concomitant]
     Active Substance: VITAMINS
  7. OMEPRAZOLE. [Concomitant]
     Active Substance: OMEPRAZOLE
     Dosage: 40 MG, 2X/DAY
  8. CARAFATE [Concomitant]
     Active Substance: SUCRALFATE
     Dosage: 1 G, 4X/DAY
  9. TAMSULOSIN [Concomitant]
     Active Substance: TAMSULOSIN
     Dosage: 0.4 UNK, AS NEEDED

REACTIONS (15)
  - Peptic ulcer [Recovering/Resolving]
  - Glossodynia [Not Recovered/Not Resolved]
  - Myalgia [Recovering/Resolving]
  - Pain [Not Recovered/Not Resolved]
  - Crying [Recovered/Resolved]
  - Drug effect incomplete [Not Recovered/Not Resolved]
  - Abdominal pain upper [Recovering/Resolving]
  - Nausea [Not Recovered/Not Resolved]
  - Swollen tongue [Not Recovered/Not Resolved]
  - Depressed mood [Not Recovered/Not Resolved]
  - Speech disorder [Not Recovered/Not Resolved]
  - Peripheral swelling [Not Recovered/Not Resolved]
  - Arthralgia [Not Recovered/Not Resolved]
  - Product substitution issue [Not Recovered/Not Resolved]
  - Weight increased [Not Recovered/Not Resolved]

NARRATIVE: CASE EVENT DATE: 201901
